FAERS Safety Report 19803528 (Version 1)
Quarter: 2021Q3

REPORT INFORMATION
  Report Type: Spontaneous
  Country: US (occurrence: US)
  Receive Date: 20210902
  Receipt Date: 20210902
  Transmission Date: 20211014
  Serious: No
  Sender: FDA-Public Use
  Company Number: None

PATIENT
  Age: 89 Year
  Sex: Male

DRUGS (1)
  1. ABIRATERONE TAB 500MG [Suspect]
     Active Substance: ABIRATERONE
     Route: 048
     Dates: start: 201801

REACTIONS (3)
  - Diarrhoea [None]
  - Pulmonary oedema [None]
  - Fluid overload [None]

NARRATIVE: CASE EVENT DATE: 20210801
